FAERS Safety Report 7629496-9 (Version None)
Quarter: 2011Q3

REPORT INFORMATION
  Report Type: 
  Country: None (occurrence: None)
  Receive Date: 20110722
  Receipt Date: 20110714
  Transmission Date: 20111222
  Serious: Yes (Hospitalization, Other)
  Sender: FDA-Public Use
  Company Number: IL-ACTELION-A-CH2011-45476

PATIENT
  Age: 9 Month
  Sex: Female

DRUGS (4)
  1. REVATIO [Concomitant]
  2. TRACLEER [Suspect]
     Indication: PULMONARY ARTERIAL HYPERTENSION
     Dosage: UNK , UNK
     Route: 048
     Dates: start: 20101101
  3. DIURETICS [Concomitant]
     Dosage: UNK
  4. FLOLAN [Concomitant]

REACTIONS (3)
  - CONDITION AGGRAVATED [None]
  - PULMONARY ARTERIAL HYPERTENSION [None]
  - RESPIRATORY TRACT INFECTION [None]
